FAERS Safety Report 9581060 (Version 2)
Quarter: 2013Q4

REPORT INFORMATION
  Report Type: Report from Study
  Country: DE (occurrence: DE)
  Receive Date: 20131002
  Receipt Date: 20131002
  Transmission Date: 20140711
  Serious: Yes (Hospitalization)
  Sender: FDA-Public Use
  Company Number: DE-ELI_LILLY_AND_COMPANY-DE200610003217

PATIENT
  Sex: Female
  Weight: 75 kg

DRUGS (5)
  1. GEMCITABINE HYDROCHLORIDE [Suspect]
     Indication: BREAST CANCER
     Dosage: 1000 MG, OTHER
     Route: 042
     Dates: start: 20061006
  2. DOCETAXEL [Suspect]
     Indication: BREAST CANCER
     Dosage: 70 MG, UNK
     Route: 042
     Dates: start: 20061006, end: 20061008
  3. DOCETAXEL [Suspect]
     Dosage: 20 MG, UNK
     Route: 042
     Dates: start: 20061006
  4. KEVATRIL [Concomitant]
     Indication: PROPHYLAXIS
     Dosage: 1 MG, UNK
     Route: 042
     Dates: start: 20061006
  5. DEXAMETHASONE [Concomitant]
     Indication: PROPHYLAXIS
     Dosage: 8 MG, UNK
     Route: 042
     Dates: start: 20061006

REACTIONS (4)
  - Nausea [Recovered/Resolved]
  - Fatigue [Recovered/Resolved]
  - Dehydration [Recovered/Resolved]
  - Vomiting [Recovered/Resolved]
